FAERS Safety Report 9905242 (Version 1)
Quarter: 2014Q1

REPORT INFORMATION
  Report Type: Spontaneous
  Country: ES (occurrence: ES)
  Receive Date: 20140218
  Receipt Date: 20140218
  Transmission Date: 20141002
  Serious: Yes (Hospitalization)
  Sender: FDA-Public Use
  Company Number: ES-NOVOPROD-400258

PATIENT
  Age: 65 Year
  Sex: Male

DRUGS (6)
  1. VICTOZA [Suspect]
     Indication: DIABETES MELLITUS
     Dosage: 1.8 MG, QD
     Route: 058
     Dates: start: 20120503, end: 20130530
  2. LEVEMIR INNOLET [Concomitant]
     Indication: DIABETES MELLITUS
     Dosage: 34 IU, QD
     Route: 058
     Dates: start: 2011
  3. ACETYLSALICYLIC ACID [Concomitant]
     Dosage: 100 MG, QD
     Route: 048
     Dates: start: 2010
  4. ATORVASTATIN [Concomitant]
     Dosage: 80 MG, QD
     Route: 048
     Dates: start: 2011
  5. METFORMIN [Concomitant]
     Indication: DIABETES MELLITUS
     Dosage: 2550 MG, TID
     Route: 048
     Dates: start: 2010
  6. VALSARTAN [Concomitant]
     Dosage: 160 MG, QD
     Route: 048
     Dates: start: 2011

REACTIONS (1)
  - Pancreatic carcinoma [Unknown]
